FAERS Safety Report 12897271 (Version 2)
Quarter: 2017Q1

REPORT INFORMATION
  Report Type: Spontaneous
  Country: US (occurrence: US)
  Receive Date: 20161031
  Receipt Date: 20170124
  Transmission Date: 20170428
  Serious: No
  Sender: FDA-Public Use
  Company Number: US-JNJFOC-20161012393

PATIENT
  Sex: Male
  Weight: 90.72 kg

DRUGS (3)
  1. FENTANYL TRANSDERMAL SYSTEM [Suspect]
     Active Substance: FENTANYL
     Indication: NECK PAIN
     Route: 062
  2. FENTANYL TRANSDERMAL SYSTEM [Suspect]
     Active Substance: FENTANYL
     Indication: BACK PAIN
     Route: 062
  3. OXYCODONE [Concomitant]
     Active Substance: OXYCODONE
     Indication: OSTEOARTHRITIS
     Route: 048
     Dates: start: 2014

REACTIONS (4)
  - Wrong technique in product usage process [Recovered/Resolved]
  - Product adhesion issue [Unknown]
  - Underdose [Unknown]
  - Inappropriate schedule of drug administration [Unknown]
